FAERS Safety Report 7722003-1 (Version None)
Quarter: 2011Q3

REPORT INFORMATION
  Report Type: 
  Country: None (occurrence: None)
  Receive Date: 20110825
  Receipt Date: 20110810
  Transmission Date: 20111222
  Serious: Yes (Death)
  Sender: FDA-Public Use
  Company Number: FK201101656

PATIENT
  Sex: Male

DRUGS (6)
  1. IFOSFAMIDE [Suspect]
     Indication: FIBROSARCOMA
     Dosage: 54 GM/M2
  2. CISPLATIN [Suspect]
     Indication: FIBROSARCOMA
     Dosage: 480 MG/M2
  3. DOXORUBICIN HCL [Suspect]
     Indication: FIBROSARCOMA
     Dosage: 320 MG/M2
  4. MESNA [Suspect]
     Indication: FIBROSARCOMA
  5. CYCLOPHOSPHAMIDE [Suspect]
     Indication: FIBROSARCOMA
     Dosage: 8 GM/M2
  6. NEUPOGEN [Suspect]
     Indication: FIBROSARCOMA

REACTIONS (1)
  - ACUTE MYELOID LEUKAEMIA [None]
